FAERS Safety Report 5097013-6 (Version None)
Quarter: 2006Q3

REPORT INFORMATION
  Report Type: 
  Country: None (occurrence: None)
  Receive Date: 20060831
  Receipt Date: 20060831
  Transmission Date: 20061208
  Serious: Yes (Life-Threatening, Hospitalization, Other)
  Sender: FDA-Public Use
  Company Number: None

PATIENT
  Age: 52 Year
  Sex: Male
  Weight: 104.3273 kg

DRUGS (4)
  1. BACLOFEN [Suspect]
     Indication: BACK PAIN
     Dosage: 3 TIMES A DAY PO
     Route: 048
     Dates: start: 20060615, end: 20060704
  2. BACLOFEN [Suspect]
     Indication: NECK PAIN
     Dosage: 3 TIMES A DAY PO
     Route: 048
     Dates: start: 20060615, end: 20060704
  3. TIZANIDINE HCL [Suspect]
     Indication: BACK PAIN
     Dosage: 4MG 3 TIMES A DAY PO
     Route: 048
     Dates: start: 20060825, end: 20060828
  4. TIZANIDINE HCL [Suspect]
     Indication: NECK PAIN
     Dosage: 4MG 3 TIMES A DAY PO
     Route: 048
     Dates: start: 20060825, end: 20060828

REACTIONS (8)
  - AGGRESSION [None]
  - ANGER [None]
  - JUDGEMENT IMPAIRED [None]
  - MEDICATION ERROR [None]
  - MOOD ALTERED [None]
  - OVERDOSE [None]
  - PERSONALITY CHANGE [None]
  - RESPIRATORY ARREST [None]
